FAERS Safety Report 6143367-9 (Version None)
Quarter: 2009Q2

REPORT INFORMATION
  Report Type: 
  Country: None (occurrence: None)
  Receive Date: 20090403
  Receipt Date: 20090318
  Transmission Date: 20091009
  Serious: Yes (Other)
  Sender: FDA-Public Use
  Company Number: GB-B.I. PHARMACEUTICALS,INC./RIDGEFIELD-2009-DE-02424GD

PATIENT
  Age: 79 Year
  Sex: Female

DRUGS (4)
  1. PRAMIPEXOLE DIHYDROCHLORIDE [Suspect]
     Indication: DYSTONIA
  2. PRAMIPEXOLE DIHYDROCHLORIDE [Suspect]
     Indication: PARKINSONISM
  3. LEVODOPA [Suspect]
     Indication: DYSTONIA
  4. LEVODOPA [Suspect]
     Indication: PARKINSONISM

REACTIONS (2)
  - DOPAMINE DYSREGULATION SYNDROME [None]
  - DRUG DEPENDENCE [None]
